APPROVED DRUG PRODUCT: CEFPROZIL
Active Ingredient: CEFPROZIL
Strength: 250MG
Dosage Form/Route: TABLET;ORAL
Application: A090857 | Product #001 | TE Code: AB
Applicant: ALKEM LABORATORIES LTD
Approved: Apr 9, 2024 | RLD: No | RS: No | Type: RX